FAERS Safety Report 4794411-2 (Version None)
Quarter: 2005Q4

REPORT INFORMATION
  Report Type: 
  Country: None (occurrence: None)
  Receive Date: 20051011
  Receipt Date: 20050701
  Transmission Date: 20060501
  Serious: Yes (Hospitalization)
  Sender: FDA-Public Use
  Company Number: US-ROCHE-409893

PATIENT
  Age: 49 Year
  Sex: Male

DRUGS (7)
  1. PEGASYS [Suspect]
     Dosage: ROUTE OF ADMINISTRATION REPORTED AS INJECTION. DOSAGE REGIMEN REPORTED AS QW.
     Route: 050
     Dates: start: 20050315, end: 20050615
  2. COPEGUS [Suspect]
     Route: 048
     Dates: start: 20050315, end: 20050615
  3. ZOLOFT [Concomitant]
     Indication: DEPRESSION
     Route: 048
  4. METHADONE [Concomitant]
     Route: 048
  5. STEROIDS NOS [Concomitant]
     Indication: PNEUMONITIS
     Dosage: HIGH DOSE STEROIDS (NOS).
  6. ANTIBIOTICS [Concomitant]
     Indication: PNEUMONITIS
     Route: 042
  7. SOLU-MEDROL [Concomitant]
     Indication: PNEUMONITIS

REACTIONS (2)
  - ACUTE RESPIRATORY DISTRESS SYNDROME [None]
  - PNEUMONITIS [None]
